FAERS Safety Report 25183150 (Version 1)
Quarter: 2025Q2

REPORT INFORMATION
  Report Type: Spontaneous
  Country: US (occurrence: US)
  Receive Date: 20250410
  Receipt Date: 20250410
  Transmission Date: 20250717
  Serious: Yes (Other)
  Sender: MACLEODS
  Company Number: US-MLMSERVICE-20250326-PI457884-00246-2

PATIENT

DRUGS (10)
  1. OLANZAPINE [Suspect]
     Active Substance: OLANZAPINE
     Indication: Psychotic disorder
     Route: 065
     Dates: start: 2020, end: 2020
  2. OLANZAPINE [Suspect]
     Active Substance: OLANZAPINE
     Indication: Catatonia
     Dosage: DECREASED TO 10 MG DAILY 2 WEEKS AFTER DISCHARGE
     Route: 065
     Dates: start: 2020, end: 2020
  3. OLANZAPINE [Suspect]
     Active Substance: OLANZAPINE
     Dosage: INCREASED TO 5 MG ON THE THIRD DAY
     Route: 065
     Dates: start: 2020, end: 2020
  4. OLANZAPINE [Suspect]
     Active Substance: OLANZAPINE
     Dosage: INCREASED TO 15 MG ON DAY 11
     Route: 065
     Dates: start: 2020, end: 2020
  5. OLANZAPINE [Suspect]
     Active Substance: OLANZAPINE
     Dosage: TITRATED TO 20 MG DAILY ON DAY 14
     Route: 065
     Dates: start: 2020, end: 2020
  6. OLANZAPINE [Suspect]
     Active Substance: OLANZAPINE
     Dosage: INCREASED TO 10 MG ON DAY 5
     Route: 065
     Dates: start: 2020, end: 2020
  7. OLANZAPINE [Suspect]
     Active Substance: OLANZAPINE
     Dosage: DECREASED TO 5 MG 2-3 MONTHS LATER AFTER DISCHARGE
     Route: 065
     Dates: start: 2020, end: 2020
  8. OLANZAPINE [Suspect]
     Active Substance: OLANZAPINE
     Dosage: NIGHTLY
     Route: 065
     Dates: start: 2023, end: 2023
  9. OLANZAPINE [Suspect]
     Active Substance: OLANZAPINE
     Dosage: NIGHTLY
     Route: 065
     Dates: start: 2023, end: 2023
  10. OLANZAPINE [Suspect]
     Active Substance: OLANZAPINE
     Dosage: TITRATED TO 10 MG TWICE DAILY BY DAY 7
     Route: 065
     Dates: start: 2023, end: 2023

REACTIONS (8)
  - Hyperprolactinaemia [Recovered/Resolved]
  - Weight increased [Recovering/Resolving]
  - Neutropenia [Unknown]
  - Weight increased [Unknown]
  - Sedation complication [Recovering/Resolving]
  - Menstruation irregular [Recovered/Resolved]
  - Fatigue [Unknown]
  - Menstruation irregular [Unknown]

NARRATIVE: CASE EVENT DATE: 20200101
